FAERS Safety Report 9838959 (Version 1)
Quarter: 2013Q4

REPORT INFORMATION
  Report Type: Spontaneous
  Country: US (occurrence: None)
  Receive Date: 20131206
  Receipt Date: 20131206
  Transmission Date: 20140711
  Serious: Yes (Other)
  Sender: FDA-Public Use
  Company Number: 386022

PATIENT
  Age: 76 Year
  Sex: Female

DRUGS (1)
  1. NOVOLOG FLEXPEN (INSULIN ASPART) SOLUTION FOR INJECTION, 100U/ML [Suspect]
     Indication: TYPE 1 DIABETES MELLITUS
     Dosage: 6 UNITS
     Route: 058

REACTIONS (2)
  - Device breakage [None]
  - Blood glucose decreased [None]
